FAERS Safety Report 10183608 (Version 1)
Quarter: 2014Q2

REPORT INFORMATION
  Report Type: Spontaneous
  Country: US (occurrence: None)
  Receive Date: 20140425
  Receipt Date: 20140425
  Transmission Date: 20141212
  Serious: No
  Sender: FDA-Public Use
  Company Number: AP356-00438-SPO-US

PATIENT
  Age: 50 Year
  Sex: Male

DRUGS (5)
  1. BELVIQ [Suspect]
     Indication: WEIGHT CONTROL
     Dates: start: 20140203, end: 20140205
  2. STAXYN [Concomitant]
  3. JALYN [Concomitant]
  4. LEVITRA (VARDENAFIL HYDROCHLORIDE) (VARDENAFIL HYDROCHLORIDE) [Concomitant]
  5. CIALIS (TADALAFIL) [Concomitant]

REACTIONS (2)
  - Erectile dysfunction [None]
  - Anorgasmia [None]
